FAERS Safety Report 7973324-9 (Version None)
Quarter: 2011Q4

REPORT INFORMATION
  Report Type: 
  Country: None (occurrence: None)
  Receive Date: 20111213
  Receipt Date: 20110505
  Transmission Date: 20120403
  Serious: No
  Sender: FDA-Public Use
  Company Number: US-AMGEN-USASP2011023473

PATIENT
  Sex: Female

DRUGS (1)
  1. ARANESP [Suspect]
     Dosage: UNK

REACTIONS (1)
  - ACCIDENTAL EXPOSURE [None]
